FAERS Safety Report 5054372-8 (Version None)
Quarter: 2006Q2

REPORT INFORMATION
  Report Type: 
  Country: None (occurrence: None)
  Receive Date: 20060616
  Receipt Date: 20060522
  Transmission Date: 20061013
  Serious: Yes (Hospitalization, Disabling)
  Sender: FDA-Public Use
  Company Number: 225420

PATIENT
  Age: 53 Year
  Sex: Female
  Weight: 198 kg

DRUGS (8)
  1. AVASTIN [Suspect]
     Indication: NON-SMALL CELL LUNG CANCER
     Dosage: 1360 MG, Q3W, INTRAVENOUS
     Route: 042
     Dates: start: 20060302, end: 20060511
  2. COMPAZINE [Concomitant]
  3. PERCOCET [Concomitant]
  4. TOPROL-XL [Concomitant]
  5. ZOFRAN [Concomitant]
  6. HCTZ/LISINOPRIL (HYDROCHLOROTHIAZIDE) [Concomitant]
  7. PLAVIX [Concomitant]
  8. ASPIRIN [Concomitant]

REACTIONS (2)
  - APHASIA [None]
  - CEREBROVASCULAR ACCIDENT [None]
